FAERS Safety Report 8288601-4 (Version None)
Quarter: 2012Q2

REPORT INFORMATION
  Report Type: 
  Country: None (occurrence: None)
  Receive Date: 20120416
  Receipt Date: 20120411
  Transmission Date: 20120825
  Serious: Yes (Other)
  Sender: FDA-Public Use
  Company Number: FR-MERCK-1202FRA00030

PATIENT
  Age: 45 Year
  Sex: Male

DRUGS (3)
  1. LERCANIDIPINE HYDROCHLORIDE [Concomitant]
     Route: 065
  2. INDAPAMIDE AND PERINDOPRIL ARGININE [Concomitant]
     Route: 065
  3. ZETIA [Suspect]
     Indication: HYPERCHOLESTEROLAEMIA
     Route: 048
     Dates: start: 20110521, end: 20111203

REACTIONS (1)
  - CYTOLYTIC HEPATITIS [None]
